FAERS Safety Report 24712257 (Version 2)
Quarter: 2024Q4

REPORT INFORMATION
  Report Type: Report from Study
  Country: FR (occurrence: FR)
  Receive Date: 20241209
  Receipt Date: 20241231
  Transmission Date: 20250114
  Serious: Yes (Death, Life-Threatening, Hospitalization)
  Sender: MYLAN
  Company Number: FR-BAYER-2024A163913

PATIENT
  Age: 84 Year
  Sex: Male

DRUGS (4)
  1. SORAFENIB [Suspect]
     Active Substance: SORAFENIB
     Indication: Product used for unknown indication
     Dosage: FILM-COATED TABLET
     Route: 065
  2. REGORAFENIB [Suspect]
     Active Substance: REGORAFENIB
     Indication: Palliative care
     Dosage: 80 MG, QD
     Route: 065
     Dates: start: 20240228, end: 20240510
  3. BEVACIZUMAB [Concomitant]
     Active Substance: BEVACIZUMAB
     Indication: Palliative care
     Dosage: 1130 MILLIGRAM, Q3W
     Route: 065
     Dates: start: 20230807, end: 20231031
  4. TECENTRIQ [Concomitant]
     Active Substance: ATEZOLIZUMAB
     Indication: Palliative care
     Dosage: 1200 MILLIGRAM, Q3W
     Route: 065
     Dates: start: 20230807, end: 20231031

REACTIONS (2)
  - Transient ischaemic attack [Fatal]
  - Cerebrovascular accident [Fatal]

NARRATIVE: CASE EVENT DATE: 20240509
